FAERS Safety Report 4536786-5 (Version None)
Quarter: 2004Q4

REPORT INFORMATION
  Report Type: 
  Country: None (occurrence: None)
  Receive Date: 20041220
  Receipt Date: 20041210
  Transmission Date: 20050328
  Serious: Yes (Hospitalization)
  Sender: FDA-Public Use
  Company Number: EM2004-0615

PATIENT
  Age: 60 Year
  Sex: Male

DRUGS (10)
  1. PROLEUKIN [Suspect]
     Indication: RENAL CELL CARCINOMA STAGE UNSPECIFIED
     Dosage: SUBCUTAN.
     Route: 058
     Dates: start: 20041110
  2. PROLEUKIN [Suspect]
     Indication: RENAL CELL CARCINOMA STAGE UNSPECIFIED
     Dosage: SUBCUTAN.
     Route: 058
     Dates: start: 20041110
  3. PROLEUKIN [Suspect]
  4. INTERFERON ALFA (INTERFERON ALFA) [Suspect]
     Dosage: SEE IMAGE
     Dates: start: 20041108, end: 20041129
  5. PENICILLIN V [Concomitant]
  6. PAROXETINE HCL [Concomitant]
  7. ETORICOXIB [Concomitant]
  8. METOCLOPRAMIDE [Concomitant]
  9. ACETAMINOPHEN [Concomitant]
  10. VENTOLIN [Concomitant]

REACTIONS (6)
  - BLOOD ALKALINE PHOSPHATASE INCREASED [None]
  - HAEMOGLOBIN DECREASED [None]
  - LIVER FUNCTION TEST ABNORMAL [None]
  - PLATELET COUNT DECREASED [None]
  - RENAL IMPAIRMENT [None]
  - WHITE BLOOD CELL COUNT INCREASED [None]
